FAERS Safety Report 9720013 (Version 2)
Quarter: 2014Q1

REPORT INFORMATION
  Report Type: Spontaneous
  Country: US (occurrence: US)
  Receive Date: 20131128
  Receipt Date: 20140212
  Transmission Date: 20141002
  Serious: No
  Sender: FDA-Public Use
  Company Number: US-009507513-1311USA010981

PATIENT
  Sex: Female
  Weight: 99.32 kg

DRUGS (1)
  1. IMPLANON [Suspect]
     Dosage: 1 STANDARD DOSE OF 1
     Route: 059

REACTIONS (4)
  - Device kink [Unknown]
  - Device breakage [Unknown]
  - Maternal exposure before pregnancy [Unknown]
  - No adverse event [Unknown]
